FAERS Safety Report 15631538 (Version 14)
Quarter: 2019Q4

REPORT INFORMATION
  Report Type: Report from Study
  Country: US (occurrence: US)
  Receive Date: 20181119
  Receipt Date: 20191231
  Transmission Date: 20200122
  Serious: Yes (Hospitalization, Other)
  Sender: FDA-Public Use
  Company Number: US-TESARO, INC-US-2018TSO04194

PATIENT
  Age: 70 Year
  Sex: Female

DRUGS (16)
  1. NIRAPARIB [Suspect]
     Active Substance: NIRAPARIB
     Dosage: 200 MG, EVERY AFTERNOON
     Dates: start: 20181214, end: 20190114
  2. NIRAPARIB [Suspect]
     Active Substance: NIRAPARIB
     Dosage: 200 MG, EVERY AFTERNOON
     Dates: start: 20190119, end: 20190824
  3. NYSTATIN. [Concomitant]
     Active Substance: NYSTATIN
     Indication: PRODUCT USED FOR UNKNOWN INDICATION
     Dosage: UNK
  4. PREDNISONE. [Concomitant]
     Active Substance: PREDNISONE
     Indication: PRODUCT USED FOR UNKNOWN INDICATION
  5. TYLENOL [Concomitant]
     Active Substance: ACETAMINOPHEN
     Indication: PRODUCT USED FOR UNKNOWN INDICATION
     Dosage: UNK
  6. ELLURA [Concomitant]
     Active Substance: DIETARY SUPPLEMENT
     Indication: URINARY TRACT INFECTION
     Dosage: UNK, QD
  7. NIRAPARIB [Suspect]
     Active Substance: NIRAPARIB
     Dosage: 200 MG, PM WITH APPLESAUCE
     Route: 048
  8. AMLODIPINE [Concomitant]
     Active Substance: AMLODIPINE BESYLATE
     Indication: PRODUCT USED FOR UNKNOWN INDICATION
     Dosage: UNK
  9. NIRAPARIB [Suspect]
     Active Substance: NIRAPARIB
     Indication: OVARIAN CANCER
     Dosage: 200 MG, HS WITHOUT FOOD
     Route: 048
     Dates: start: 20180810, end: 20181022
  10. NIRAPARIB [Suspect]
     Active Substance: NIRAPARIB
     Dosage: 200 MG, QD IN PM WITHOUT FOOD
     Dates: start: 20190825
  11. NIRAPARIB [Suspect]
     Active Substance: NIRAPARIB
     Dosage: 200 MG, QD
     Route: 048
  12. LISINOPRIL. [Concomitant]
     Active Substance: LISINOPRIL
     Indication: PRODUCT USED FOR UNKNOWN INDICATION
  13. COMPAZINE [Concomitant]
     Active Substance: PROCHLORPERAZINE MALEATE
     Indication: PRODUCT USED FOR UNKNOWN INDICATION
     Dosage: UNK
  14. NIRAPARIB [Suspect]
     Active Substance: NIRAPARIB
     Dosage: 200 MG, PM WITH APPLESAUCE
     Route: 048
  15. ATROVENT [Concomitant]
     Active Substance: IPRATROPIUM BROMIDE
     Indication: PRODUCT USED FOR UNKNOWN INDICATION
     Dosage: UNK
  16. VAGIFEM [Concomitant]
     Active Substance: ESTRADIOL
     Indication: PRODUCT USED FOR UNKNOWN INDICATION
     Dosage: UNK

REACTIONS (28)
  - Energy increased [Unknown]
  - Cough [Not Recovered/Not Resolved]
  - Nausea [Recovered/Resolved]
  - Malaise [Recovered/Resolved]
  - Autoimmune disorder [Unknown]
  - Interstitial lung disease [Not Recovered/Not Resolved]
  - Hypertension [Recovered/Resolved]
  - Arthritis [Not Recovered/Not Resolved]
  - Abdominal discomfort [Unknown]
  - Pain [Unknown]
  - Insomnia [Recovered/Resolved]
  - Fatigue [Recovering/Resolving]
  - Arthralgia [Unknown]
  - Tachycardia [Recovered/Resolved]
  - Gastrointestinal disorder [Recovered/Resolved]
  - Pneumonia [Recovered/Resolved]
  - Haemorrhage [Unknown]
  - Taste disorder [Unknown]
  - Dyspnoea [Not Recovered/Not Resolved]
  - Urinary tract infection [Recovered/Resolved]
  - Respiratory tract infection viral [Unknown]
  - Abdominal distension [Unknown]
  - Vomiting [Recovered/Resolved]
  - Product dose omission [Unknown]
  - Pulmonary fibrosis [Unknown]
  - Hip arthroplasty [Unknown]
  - Weight decreased [Unknown]
  - Palpitations [Not Recovered/Not Resolved]

NARRATIVE: CASE EVENT DATE: 201810
